FAERS Safety Report 9940008 (Version 1)
Quarter: 2014Q1

REPORT INFORMATION
  Report Type: Report from Study
  Country: US (occurrence: US)
  Receive Date: 20140303
  Receipt Date: 20140303
  Transmission Date: 20141002
  Serious: No
  Sender: FDA-Public Use
  Company Number: US-ABBVIE-13P-163-1037720-00

PATIENT
  Age: 30 Year
  Sex: Female
  Weight: 71.73 kg

DRUGS (2)
  1. HUMIRA [Suspect]
     Indication: RHEUMATOID ARTHRITIS
     Dates: start: 2012, end: 201301
  2. HUMIRA [Suspect]
     Dates: start: 201301

REACTIONS (7)
  - Cough [Recovered/Resolved]
  - Oropharyngeal pain [Recovered/Resolved]
  - Nasal inflammation [Recovered/Resolved]
  - Pharyngitis [Recovered/Resolved]
  - Ear infection [Recovered/Resolved]
  - Injection site erythema [Not Recovered/Not Resolved]
  - Injection site pruritus [Not Recovered/Not Resolved]
